FAERS Safety Report 15465573 (Version 3)
Quarter: 2020Q1

REPORT INFORMATION
  Report Type: Report from Study
  Country: US (occurrence: US)
  Receive Date: 20181004
  Receipt Date: 20200319
  Transmission Date: 20200409
  Serious: No
  Sender: FDA-Public Use
  Company Number: PHEH2018US040467

PATIENT
  Sex: Female

DRUGS (2)
  1. GILENYA [Suspect]
     Active Substance: FINGOLIMOD HYDROCHLORIDE
     Dosage: 0.5 MG, UNKNOWN
     Route: 048
  2. GILENYA [Suspect]
     Active Substance: FINGOLIMOD HYDROCHLORIDE
     Indication: MULTIPLE SCLEROSIS
     Dosage: 0.5 MG, QD
     Route: 048
     Dates: start: 20180419

REACTIONS (5)
  - Photophobia [Unknown]
  - Alopecia [Not Recovered/Not Resolved]
  - Onychoclasis [Not Recovered/Not Resolved]
  - Central nervous system lesion [Unknown]
  - Therapeutic response unexpected [Unknown]
